FAERS Safety Report 10484371 (Version 1)
Quarter: 2014Q3

REPORT INFORMATION
  Report Type: Spontaneous
  Country: US (occurrence: None)
  Receive Date: 20140926
  Receipt Date: 20140926
  Transmission Date: 20150326
  Serious: Yes (Other)
  Sender: FDA-Public Use
  Company Number: 2014HINLIT0871

PATIENT
  Age: 66 Year
  Sex: Male

DRUGS (4)
  1. RITONAVIR [Concomitant]
     Active Substance: RITONAVIR
  2. LOPINAVIR + RITONAVIR (LOPINAVIR, RITONAVIR) UNKNOWN [Suspect]
     Active Substance: LOPINAVIR\RITONAVIR
     Indication: HIV INFECTION
  3. HYDROCORTISONE. [Concomitant]
     Active Substance: HYDROCORTISONE
  4. FLUTICASONE PROPIONATE (FLUTICASONE PROPIONATE) (FLUTICASONE PROPIONATE) [Suspect]
     Active Substance: FLUTICASONE PROPIONATE
     Indication: PRODUCT USED FOR UNKNOWN INDICATION

REACTIONS (11)
  - Osteoporosis [None]
  - Hypertension [None]
  - Hypertriglyceridaemia [None]
  - Obesity [None]
  - Drug interaction [None]
  - Hyperlactacidaemia [None]
  - Myopathy [None]
  - Cushing^s syndrome [None]
  - Kaposi^s sarcoma [None]
  - Diabetes mellitus [None]
  - Increased tendency to bruise [None]
